FAERS Safety Report 14612191 (Version 3)
Quarter: 2018Q2

REPORT INFORMATION
  Report Type: Spontaneous
  Country: DE (occurrence: DE)
  Receive Date: 20180308
  Receipt Date: 20180506
  Transmission Date: 20180711
  Serious: Yes (Hospitalization, Other)
  Sender: FDA-Public Use
  Company Number: PHHY2018DE036161

PATIENT
  Sex: Male
  Weight: 87 kg

DRUGS (11)
  1. METOPROLOL. [Concomitant]
     Active Substance: METOPROLOL
     Indication: PRODUCT USED FOR UNKNOWN INDICATION
     Dosage: 95 MG, QD
     Route: 065
  2. ATORVASTATIN [Concomitant]
     Active Substance: ATORVASTATIN
     Indication: PRODUCT USED FOR UNKNOWN INDICATION
     Dosage: 20 MG, QD
     Route: 065
  3. GLIVEC [Concomitant]
     Active Substance: IMATINIB MESYLATE
     Indication: PRODUCT USED FOR UNKNOWN INDICATION
     Dosage: 400 MG, QD
     Route: 065
     Dates: start: 20180303
  4. AMLODIPINE [Concomitant]
     Active Substance: AMLODIPINE BESYLATE
     Indication: PRODUCT USED FOR UNKNOWN INDICATION
     Dosage: 5 MG, QD
     Route: 065
  5. CANDESARTAN. [Concomitant]
     Active Substance: CANDESARTAN
     Dosage: 16 MG, QD
     Route: 065
     Dates: start: 201801, end: 201803
  6. ELIQUIS [Concomitant]
     Active Substance: APIXABAN
     Indication: PRODUCT USED FOR UNKNOWN INDICATION
     Dosage: 5 MG, BID
     Route: 065
  7. CANDESARTAN. [Concomitant]
     Active Substance: CANDESARTAN
     Indication: PRODUCT USED FOR UNKNOWN INDICATION
     Dosage: 32 MG, HALF TABLET QD
     Route: 065
     Dates: start: 201801
  8. HYDROCHLOROTIAZID [Concomitant]
     Indication: PRODUCT USED FOR UNKNOWN INDICATION
     Dosage: 12.5 MG, QD
     Route: 065
  9. METOHEXAL [Concomitant]
     Active Substance: METOPROLOL SUCCINATE
     Indication: PRODUCT USED FOR UNKNOWN INDICATION
     Dosage: 95 MG,  HALF TABLET QD
     Route: 065
  10. TASIGNA [Suspect]
     Active Substance: NILOTINIB
     Indication: CHRONIC MYELOID LEUKAEMIA
     Dosage: 150 MG, BID
     Route: 065
     Dates: start: 200801, end: 20180303
  11. DABIGATRAN [Concomitant]
     Active Substance: DABIGATRAN
     Indication: PRODUCT USED FOR UNKNOWN INDICATION
     Dosage: 110 MG, BID
     Route: 065
     Dates: start: 201803

REACTIONS (49)
  - Discomfort [Unknown]
  - Cardiac valve disease [Unknown]
  - Cardiac failure [Unknown]
  - Spondylolisthesis [Unknown]
  - Dizziness [Unknown]
  - Lethargy [Unknown]
  - Coronary artery occlusion [Unknown]
  - Squamous cell carcinoma [Unknown]
  - Transient ischaemic attack [Unknown]
  - Dyspnoea exertional [Unknown]
  - Asthenia [Unknown]
  - Liver function test abnormal [Unknown]
  - Epilepsy [Unknown]
  - Agitation [Unknown]
  - Cholangitis [Unknown]
  - Left ventricle outflow tract obstruction [Unknown]
  - Pneumonia [Unknown]
  - Microangiopathy [Unknown]
  - Ventricular extrasystoles [Unknown]
  - Haematoma [Unknown]
  - Loss of consciousness [Unknown]
  - Coronary artery disease [Unknown]
  - Peripheral arterial occlusive disease [Unknown]
  - Atrial fibrillation [Unknown]
  - Hypertension [Unknown]
  - Bowen^s disease [Unknown]
  - Sciatica [Unknown]
  - Hyponatraemia [Unknown]
  - Tongue disorder [Unknown]
  - Aortic arteriosclerosis [Unknown]
  - Injury [Unknown]
  - Supraventricular extrasystoles [Unknown]
  - Sleep disorder [Unknown]
  - Left ventricular hypertrophy [Unknown]
  - Confusional state [Unknown]
  - Thalamic infarction [Unknown]
  - Transient aphasia [Unknown]
  - Blood pressure decreased [Unknown]
  - Muscle twitching [Unknown]
  - Arteriosclerosis [Unknown]
  - Second primary malignancy [Unknown]
  - Somnolence [Unknown]
  - Stenosis [Unknown]
  - Diastolic dysfunction [Unknown]
  - Oedema peripheral [Unknown]
  - Arrhythmia [Unknown]
  - Thrombocytopenia [Unknown]
  - Vomiting [Unknown]
  - Chest discomfort [Unknown]

NARRATIVE: CASE EVENT DATE: 201203
